FAERS Safety Report 6461987-9 (Version None)
Quarter: 2009Q4

REPORT INFORMATION
  Report Type: 
  Country: None (occurrence: None)
  Receive Date: 20091130
  Receipt Date: 20091120
  Transmission Date: 20100525
  Serious: Yes (Death, Other)
  Sender: FDA-Public Use
  Company Number: LK-B.I. PHARMACEUTICALS,INC./RIDGEFIELD-2009-DE-07256GD

PATIENT

DRUGS (1)
  1. CATAPRES [Suspect]
     Indication: CHEMICAL POISONING
     Dosage: LOADING DOSE OF 0.45 MG, FOLLOWED BY 0.5 MG OF CLONIDINE OVER 24 HOURS
     Route: 042

REACTIONS (2)
  - HYPOTENSION [None]
  - RESPIRATORY FAILURE [None]
